FAERS Safety Report 6844890-1 (Version None)
Quarter: 2010Q3

REPORT INFORMATION
  Report Type: 
  Country: None (occurrence: None)
  Receive Date: 20100713
  Receipt Date: 20100629
  Transmission Date: 20110219
  Serious: Yes (Hospitalization, Other)
  Sender: FDA-Public Use
  Company Number: A-NJ2010-37490

PATIENT
  Age: 81 Year
  Sex: Female

DRUGS (1)
  1. TRACLEER [Suspect]
     Indication: PULMONARY ARTERIAL HYPERTENSION
     Dosage: ORAL
     Route: 048
     Dates: start: 20100408

REACTIONS (5)
  - CONFUSIONAL STATE [None]
  - CORONARY ARTERY DISEASE [None]
  - DYSPNOEA [None]
  - MUSCLE HAEMORRHAGE [None]
  - POST PROCEDURAL COMPLICATION [None]
